FAERS Safety Report 11496520 (Version 1)
Quarter: 2015Q3

REPORT INFORMATION
  Report Type: Spontaneous
  Country: US (occurrence: US)
  Receive Date: 20150911
  Receipt Date: 20150911
  Transmission Date: 20151125
  Serious: No
  Sender: FDA-Public Use
  Company Number: US-ASTELLAS-2015US031759

PATIENT
  Age: 50 Year
  Sex: Female
  Weight: 111 kg

DRUGS (1)
  1. CRESEMBA [Suspect]
     Active Substance: ISAVUCONAZONIUM SULFATE
     Indication: HISTOPLASMOSIS
     Dosage: UNK, UNKNOWN FREQ.
     Route: 065
     Dates: start: 20150819

REACTIONS (1)
  - Off label use [Unknown]

NARRATIVE: CASE EVENT DATE: 20150819
